FAERS Safety Report 7004677-6 (Version None)
Quarter: 2010Q3

REPORT INFORMATION
  Report Type: 
  Country: None (occurrence: None)
  Receive Date: 20100921
  Receipt Date: 20100914
  Transmission Date: 20110219
  Serious: Yes (Other)
  Sender: FDA-Public Use
  Company Number: US-ASTRAZENECA-2007UW23328

PATIENT
  Age: 365 Month
  Sex: Male
  Weight: 115.7 kg

DRUGS (10)
  1. SEROQUEL [Suspect]
     Indication: PARANOIA
     Dosage: 25 - 200 MG
     Route: 048
     Dates: start: 20010601, end: 20070901
  2. SEROQUEL [Suspect]
     Indication: SCHIZOPHRENIA
     Dosage: 25 - 200 MG
     Route: 048
     Dates: start: 20010601, end: 20070901
  3. SEROQUEL [Suspect]
     Indication: SLEEP DISORDER
     Dosage: 25 - 200 MG
     Route: 048
     Dates: start: 20010601, end: 20070901
  4. SEROQUEL [Suspect]
     Dosage: 25MG-200 MG
     Route: 048
     Dates: start: 20010821
  5. SEROQUEL [Suspect]
     Dosage: 25MG-200 MG
     Route: 048
     Dates: start: 20010821
  6. SEROQUEL [Suspect]
     Dosage: 25MG-200 MG
     Route: 048
     Dates: start: 20010821
  7. BENZTROPINE MESYLATE [Concomitant]
     Route: 048
  8. HALDOL [Concomitant]
     Dosage: 50-100 MG
     Route: 048
     Dates: start: 20000803
  9. ZYPREXA [Concomitant]
     Indication: SCHIZOPHRENIA
     Dates: start: 20000801, end: 20011101
  10. ZYPREXA [Concomitant]
     Indication: PARANOIA
     Dates: start: 20000801, end: 20011101

REACTIONS (17)
  - BLOOD CHOLESTEROL INCREASED [None]
  - CHEST PAIN [None]
  - DIABETES MELLITUS [None]
  - DIABETES MELLITUS INADEQUATE CONTROL [None]
  - DIABETIC COMPLICATION [None]
  - DIZZINESS [None]
  - GLYCOSURIA [None]
  - HYPERGLYCAEMIA [None]
  - HYPERLIPIDAEMIA [None]
  - JOINT INJURY [None]
  - NEPHROPATHY [None]
  - OBESITY [None]
  - OCULAR HYPERAEMIA [None]
  - PHARYNGITIS [None]
  - RENAL FAILURE CHRONIC [None]
  - TYPE 1 DIABETES MELLITUS [None]
  - TYPE 2 DIABETES MELLITUS [None]
